FAERS Safety Report 20216267 (Version 1)
Quarter: 2021Q4

REPORT INFORMATION
  Report Type: Spontaneous
  Country: US (occurrence: US)
  Receive Date: 20211222
  Receipt Date: 20211222
  Transmission Date: 20220303
  Serious: No
  Sender: FDA-Public Use
  Company Number: US-009507513-2112USA003817

PATIENT
  Sex: Male

DRUGS (3)
  1. PRINIVIL [Suspect]
     Active Substance: LISINOPRIL
     Indication: Blood pressure management
     Dosage: UNK
     Route: 048
     Dates: start: 2021
  2. INLYTA [Suspect]
     Active Substance: AXITINIB
     Dosage: UNK, TWICE DAILY
     Dates: start: 20211011, end: 2021
  3. INLYTA [Suspect]
     Active Substance: AXITINIB
     Dosage: UNK, ONCE DAILY
     Dates: start: 2021

REACTIONS (2)
  - Drug ineffective [Unknown]
  - Taste disorder [Unknown]

NARRATIVE: CASE EVENT DATE: 20210101
